FAERS Safety Report 10890078 (Version 2)
Quarter: 2015Q1

REPORT INFORMATION
  Report Type: Spontaneous
  Country: US (occurrence: US)
  Receive Date: 20150305
  Receipt Date: 20150312
  Transmission Date: 20150721
  Serious: No
  Sender: FDA-Public Use
  Company Number: US-PFIZER INC-2015075429

PATIENT
  Age: 67 Year
  Sex: Female
  Weight: 118 kg

DRUGS (3)
  1. NORPACE [Suspect]
     Active Substance: DISOPYRAMIDE PHOSPHATE
     Dosage: 150 MG, 2X/DAY
     Dates: start: 201501, end: 20150119
  2. NORPACE [Suspect]
     Active Substance: DISOPYRAMIDE PHOSPHATE
     Dosage: 150 MG, 1X/DAY
     Dates: start: 20150120
  3. NORPACE [Suspect]
     Active Substance: DISOPYRAMIDE PHOSPHATE
     Indication: VENTRICULAR EXTRASYSTOLES
     Dosage: 150 MG, 3X/DAY
     Route: 048
     Dates: start: 1999

REACTIONS (3)
  - Palpitations [Not Recovered/Not Resolved]
  - Dyspnoea [Not Recovered/Not Resolved]
  - Intentional product misuse [Unknown]

NARRATIVE: CASE EVENT DATE: 201501
